FAERS Safety Report 24566259 (Version 2)
Quarter: 2024Q4

REPORT INFORMATION
  Report Type: Report from Study
  Country: US (occurrence: US)
  Receive Date: 20241030
  Receipt Date: 20241205
  Transmission Date: 20250114
  Serious: Yes (Hospitalization)
  Sender: ABBVIE
  Company Number: US-ABBVIE-5982613

PATIENT
  Age: 77 Year
  Sex: Male

DRUGS (1)
  1. VENCLEXTA [Suspect]
     Active Substance: VENETOCLAX
     Indication: Acute myeloid leukaemia
     Dosage: LAST ADMIN DATE: 2024
     Route: 048
     Dates: start: 202409

REACTIONS (5)
  - COVID-19 [Recovering/Resolving]
  - Pyrexia [Unknown]
  - Influenza [Recovering/Resolving]
  - Pneumonia [Recovering/Resolving]
  - Bacterial sepsis [Recovering/Resolving]

NARRATIVE: CASE EVENT DATE: 20240101
